FAERS Safety Report 8050090-2 (Version None)
Quarter: 2012Q1

REPORT INFORMATION
  Report Type: 
  Country: None (occurrence: None)
  Receive Date: 20120117
  Receipt Date: 20120111
  Transmission Date: 20120608
  Serious: Yes (Other)
  Sender: FDA-Public Use
  Company Number: US-PFIZER INC-2011314998

PATIENT
  Sex: Female
  Weight: 79.365 kg

DRUGS (4)
  1. NEURONTIN [Suspect]
     Indication: FIBROMYALGIA
     Dosage: 100 MG, 3X/DAY
  2. ACTOS [Concomitant]
     Indication: DIABETES MELLITUS
     Dosage: 30 MG DAILY
  3. FLEXERIL [Concomitant]
     Indication: BACK PAIN
     Dosage: 10 MG, AS NEEDED EVERY 6-8 HOURS
  4. LYRICA [Suspect]
     Dosage: UNK

REACTIONS (3)
  - BACK DISORDER [None]
  - PAIN [None]
  - DRUG INEFFECTIVE [None]
